FAERS Safety Report 4461170-2 (Version None)
Quarter: 2004Q3

REPORT INFORMATION
  Report Type: 
  Country: None (occurrence: None)
  Receive Date: 20040923
  Receipt Date: 20040923
  Transmission Date: 20050211
  Serious: Yes (Hospitalization)
  Sender: FDA-Public Use
  Company Number: None

PATIENT
  Age: 61 Year
  Sex: Male
  Weight: 73.2 kg

DRUGS (19)
  1. CISPLATIN [Suspect]
     Dosage: 115 MG ONCE INTRAVENOUS
     Route: 042
     Dates: start: 20040901, end: 20040901
  2. ETOPOSIDE [Suspect]
     Dosage: 230 MG ONCE INTRAVENOUS
     Route: 042
     Dates: start: 20040901, end: 20040901
  3. ASPIRIN [Concomitant]
  4. BISACODYL [Concomitant]
  5. DIPHENOXYLATE AND ATROPINE [Concomitant]
  6. DM10GUAIFENESIN [Concomitant]
  7. FOLIC ACID [Concomitant]
  8. LEVETIRACETAM [Concomitant]
  9. LORATADINE [Concomitant]
  10. MULTI-VITAMIN [Concomitant]
  11. OLANZAPINE [Concomitant]
  12. OXYCODONE 5MG/ACETAMINOPHEN 325 MG [Concomitant]
  13. DILANTIN [Concomitant]
  14. PSEUDOEPHEDRINE HCL [Concomitant]
  15. SULFAMETHOXAZOLE 800/ TRIMETH 160 [Concomitant]
  16. TERAZOSIN HCL [Concomitant]
  17. THIAMINE HCL [Concomitant]
  18. ZOLPIDEM TARTRATE [Concomitant]
  19. RADIATION THERAPY [Concomitant]

REACTIONS (11)
  - CHILLS [None]
  - COAGULOPATHY [None]
  - DEEP VEIN THROMBOSIS [None]
  - DYSURIA [None]
  - FEELING HOT [None]
  - PLEURAL EFFUSION [None]
  - PNEUMONIA [None]
  - PULMONARY EMBOLISM [None]
  - RASH [None]
  - TACHYCARDIA [None]
  - TACHYPNOEA [None]
